FAERS Safety Report 7630185-5 (Version None)
Quarter: 2011Q3

REPORT INFORMATION
  Report Type: 
  Country: None (occurrence: None)
  Receive Date: 20110722
  Receipt Date: 20110712
  Transmission Date: 20111222
  Serious: Yes (Hospitalization)
  Sender: FDA-Public Use
  Company Number: PHHY2011US62262

PATIENT

DRUGS (1)
  1. AFINITOR [Suspect]
     Indication: PANCREATIC CARCINOMA
     Dosage: UNK UKN, UNK

REACTIONS (2)
  - MENTAL STATUS CHANGES [None]
  - WHITE BLOOD CELL COUNT INCREASED [None]
